FAERS Safety Report 22183555 (Version 1)
Quarter: 2023Q2

REPORT INFORMATION
  Report Type: Spontaneous
  Country: US (occurrence: US)
  Receive Date: 20230406
  Receipt Date: 20230406
  Transmission Date: 20230721
  Serious: No
  Sender: FDA-Public Use
  Company Number: US-ELI_LILLY_AND_COMPANY-US202304001220

PATIENT
  Sex: Female
  Weight: 81.65 kg

DRUGS (2)
  1. EMGALITY [Suspect]
     Active Substance: GALCANEZUMAB-GNLM
     Indication: Migraine
     Dosage: 120 MG, MONTHLY (1/M)
     Route: 065
     Dates: start: 20230108
  2. NURTEC ODT [Concomitant]
     Active Substance: RIMEGEPANT SULFATE
     Indication: Migraine
     Dosage: 2 DOSAGE FORM, OTHER (EVERY 48 HOURS)
     Route: 048
     Dates: start: 2021

REACTIONS (2)
  - Injection site pain [Unknown]
  - Therapeutic product effect incomplete [Unknown]
